FAERS Safety Report 5523306-1 (Version None)
Quarter: 2007Q4

REPORT INFORMATION
  Report Type: 
  Country: None (occurrence: None)
  Receive Date: 20071121
  Receipt Date: 20071121
  Transmission Date: 20080405
  Serious: Yes (Other)
  Sender: FDA-Public Use
  Company Number: A0695519A

PATIENT
  Age: 20 Year
  Sex: Female

DRUGS (2)
  1. ALLI [Suspect]
     Indication: WEIGHT LOSS DIET
     Route: 048
     Dates: start: 20071105, end: 20071117
  2. MULTI-VITAMIN [Concomitant]

REACTIONS (6)
  - HAEMATOCHEZIA [None]
  - NERVOUSNESS [None]
  - PHAGOPHOBIA [None]
  - RECTAL DISCHARGE [None]
  - RECTAL HAEMORRHAGE [None]
  - STOMACH DISCOMFORT [None]
